FAERS Safety Report 21648067 (Version 1)
Quarter: 2022Q4

REPORT INFORMATION
  Report Type: Spontaneous
  Country: TR (occurrence: TR)
  Receive Date: 20221128
  Receipt Date: 20221128
  Transmission Date: 20230113
  Serious: Yes (Other)
  Sender: FDA-Public Use
  Company Number: TR-002147023-NVSC2022TR240244

PATIENT
  Age: 38 Year
  Sex: Male

DRUGS (1)
  1. SECUKINUMAB [Suspect]
     Active Substance: SECUKINUMAB
     Indication: Ankylosing spondylitis
     Dosage: 1 DOSAGE FORM, QMO (FOR 2 YEARS, 1 DOSE IN 4 WEEKS)
     Route: 058

REACTIONS (3)
  - Pain [Unknown]
  - Gait disturbance [Unknown]
  - Back pain [Unknown]
